FAERS Safety Report 10008547 (Version 1)
Quarter: 2014Q1

REPORT INFORMATION
  Report Type: Spontaneous
  Country: US (occurrence: None)
  Receive Date: 20140228
  Receipt Date: 20140228
  Transmission Date: 20141002
  Serious: Yes (Other)
  Sender: FDA-Public Use
  Company Number: 225463

PATIENT
  Sex: 0

DRUGS (1)
  1. PICATO GEL [Suspect]
     Indication: PRODUCT USED FOR UNKNOWN INDICATION

REACTIONS (6)
  - Eye burns [None]
  - Application site pain [None]
  - Application site pain [None]
  - Product quality issue [None]
  - Incorrect drug administration duration [None]
  - Eye irritation [None]
